FAERS Safety Report 8203670-5 (Version None)
Quarter: 2012Q1

REPORT INFORMATION
  Report Type: 
  Country: None (occurrence: None)
  Receive Date: 20120308
  Receipt Date: 20120228
  Transmission Date: 20120608
  Serious: Yes (Hospitalization)
  Sender: FDA-Public Use
  Company Number: DKLU1077295

PATIENT
  Age: 7 Month
  Sex: Female

DRUGS (2)
  1. SABRIL [Suspect]
     Indication: INFANTILE SPASMS
     Dosage: 750 MG MILLIGRA(S), 1 IN 1 D, ORAL
     Route: 048
     Dates: start: 20110802
  2. PHENOBARBITAL TAB [Concomitant]

REACTIONS (1)
  - RESPIRATORY SYNCYTIAL VIRUS INFECTION [None]
